FAERS Safety Report 12204946 (Version 1)
Quarter: 2016Q1

REPORT INFORMATION
  Report Type: Spontaneous
  Country: US (occurrence: None)
  Receive Date: 20160322
  Receipt Date: 20160322
  Transmission Date: 20160526
  Serious: Yes (Other)
  Sender: FDA-Public Use
  Company Number: None

PATIENT
  Age: 54 Year
  Sex: Female
  Weight: 68.04 kg

DRUGS (2)
  1. FUNGOID TINCTURE [Suspect]
     Active Substance: MICONAZOLE NITRATE
     Indication: ONYCHOMYCOSIS
     Dosage: 29.57 ML 2X A DAY, I WAS TOLD TO APPLY IT ABOVE MY TOE NAIL NOT ON THE TOE NAIL ABOUT ABOVE IT
     Route: 061
     Dates: start: 20151001, end: 20151020
  2. LISINOPRIL. [Concomitant]
     Active Substance: LISINOPRIL

REACTIONS (6)
  - Dysstasia [None]
  - Tenderness [None]
  - Peripheral swelling [None]
  - Peripheral coldness [None]
  - Gait disturbance [None]
  - Overdose [None]

NARRATIVE: CASE EVENT DATE: 20151005
